FAERS Safety Report 16861751 (Version 1)
Quarter: 2019Q3

REPORT INFORMATION
  Report Type: Spontaneous
  Country: AU (occurrence: AU)
  Receive Date: 20190927
  Receipt Date: 20190927
  Transmission Date: 20191005
  Serious: Yes (Hospitalization)
  Sender: FDA-Public Use
  Company Number: AU-AMGEN-AUSSP2019158455

PATIENT
  Age: 71 Year
  Sex: Female

DRUGS (10)
  1. DIABEX [Concomitant]
     Active Substance: METFORMIN HYDROCHLORIDE
     Dosage: 500 UNK
  2. EZETROL [Concomitant]
     Active Substance: EZETIMIBE
     Dosage: 10 UNK
  3. OSTELIN [ERGOCALCIFEROL] [Concomitant]
  4. TENORMIN [Concomitant]
     Active Substance: ATENOLOL
     Dosage: 50 UNK, BID
  5. FOLIC ACID. [Concomitant]
     Active Substance: FOLIC ACID
     Dosage: 500 MICROGRAM, TWO
  6. OSTEOMOL 665 PARACETAMOL [Concomitant]
     Dosage: 665 UNK
  7. CALCIUM [Concomitant]
     Active Substance: CALCIUM
  8. REPATHA [Suspect]
     Active Substance: EVOLOCUMAB
     Indication: BLOOD CHOLESTEROL INCREASED
     Dosage: 140 MILLIGRAM, QMO
     Route: 058
  9. VITAMIN B12 [Concomitant]
     Active Substance: CYANOCOBALAMIN
     Dosage: UNK UNK, Q3MO
  10. CARTIA [ACETYLSALICYLIC ACID] [Concomitant]
     Active Substance: ASPIRIN
     Dosage: 100 UNK

REACTIONS (2)
  - Off label use [Unknown]
  - Hyponatraemia [Unknown]

NARRATIVE: CASE EVENT DATE: 2018
